FAERS Safety Report 5156458-6 (Version None)
Quarter: 2006Q4

REPORT INFORMATION
  Report Type: 
  Country: None (occurrence: None)
  Receive Date: 20061113
  Receipt Date: 20060922
  Transmission Date: 20070319
  Serious: Yes (Other)
  Sender: FDA-Public Use
  Company Number: 2006114696

PATIENT
  Sex: Male
  Weight: 95.2554 kg

DRUGS (2)
  1. VIAGRA [Suspect]
     Indication: ERECTILE DYSFUNCTION
     Dosage: 50 MG
     Dates: start: 20041201, end: 20050101
  2. CASODEX [Concomitant]

REACTIONS (6)
  - CORRECTIVE LENS USER [None]
  - DRUG INEFFECTIVE [None]
  - SELF-MEDICATION [None]
  - TREATMENT NONCOMPLIANCE [None]
  - VISION BLURRED [None]
  - VISUAL DISTURBANCE [None]
